FAERS Safety Report 6644646-9 (Version None)
Quarter: 2010Q1

REPORT INFORMATION
  Report Type: 
  Country: None (occurrence: None)
  Receive Date: 20100322
  Receipt Date: 20100315
  Transmission Date: 20100710
  Serious: Yes (Hospitalization)
  Sender: FDA-Public Use
  Company Number: US-MERCK-1003USA02273

PATIENT
  Age: 83 Year
  Sex: Female

DRUGS (3)
  1. FOSAMAX [Suspect]
     Indication: OSTEOPOROSIS
     Route: 048
     Dates: start: 20020101, end: 20100301
  2. MELOXICAM [Concomitant]
     Route: 065
     Dates: end: 20100301
  3. LEVOTHROID [Concomitant]
     Route: 065

REACTIONS (3)
  - ARTHRITIS [None]
  - CHEST PAIN [None]
  - GASTROINTESTINAL ULCER [None]
